FAERS Safety Report 4579139-6 (Version None)
Quarter: 2005Q1

REPORT INFORMATION
  Report Type: 
  Country: None (occurrence: None)
  Receive Date: 20050121
  Receipt Date: 20041001
  Transmission Date: 20050727
  Serious: Yes (Hospitalization)
  Sender: FDA-Public Use
  Company Number: STA-AE-04-MTX-466

PATIENT
  Age: 76 Year
  Sex: Male

DRUGS (10)
  1. METHOTREXATE [Suspect]
     Indication: RHEUMATOID ARTHRITIS
     Dosage: 22.5 MG 1X PER 1 WK
     Dates: start: 19950313
  2. REMICADE [Suspect]
     Dosage: 245 MG 1X PER 8 WK,
     Dates: start: 20020412
  3. DILTIAZEM [Concomitant]
  4. SALSALATE (SALSALATE) [Concomitant]
  5. EZETROL (EZETIMIBE) [Concomitant]
  6. COLESTIPOL (COLESTIPOL) [Concomitant]
  7. RISEDRONATE (RISEDRONATE) [Concomitant]
  8. OMEPRAZOLE [Concomitant]
  9. CLOPIDOGREL BISULFATE [Concomitant]
  10. CITALOPRAM [Concomitant]

REACTIONS (3)
  - PERICARDIAL EFFUSION [None]
  - PLEURAL EFFUSION [None]
  - PNEUMONIA [None]
